FAERS Safety Report 8576614-4 (Version None)
Quarter: 2012Q3

REPORT INFORMATION
  Report Type: 
  Country: None (occurrence: None)
  Receive Date: 20120807
  Receipt Date: 20120731
  Transmission Date: 20120928
  Serious: Yes (Hospitalization, Other)
  Sender: FDA-Public Use
  Company Number: CN-ROCHE-1084672

PATIENT
  Sex: Male

DRUGS (6)
  1. LEUCOGEN (UNK INGREDIENTS) [Concomitant]
     Indication: HEPATITIS B
     Route: 048
     Dates: start: 20120121
  2. GLYCYRRHIZIN [Concomitant]
     Indication: HEPATITIS B
     Dosage: UNIT DOSE IS 2CO, DAILY DOSE IS 6CO
     Route: 048
     Dates: start: 20120210
  3. PEGASYS [Suspect]
     Indication: HEPATITIS B
     Route: 058
     Dates: start: 20120121, end: 20120511
  4. THYMOPEPTIDE [Concomitant]
     Indication: HEPATITIS B
  5. CHINESE PATENT MEDICINE (UNK INGREDIENTS) [Concomitant]
     Indication: HEPATITIS B
     Route: 048
     Dates: start: 20120210
  6. CHINESE TRADITIONAL MEDICINE [Concomitant]
     Indication: HEPATITIS B
     Route: 048
     Dates: start: 20120119, end: 20120209

REACTIONS (11)
  - HEPATIC LESION [None]
  - SPLENOMEGALY [None]
  - GASTRITIS HAEMORRHAGIC [None]
  - NEUTROPHIL COUNT DECREASED [None]
  - PORTAL HYPERTENSION [None]
  - HEPATOMEGALY [None]
  - PLATELET COUNT DECREASED [None]
  - HEPATIC CYST [None]
  - WHITE BLOOD CELL COUNT DECREASED [None]
  - ANXIETY [None]
  - GAMMA-GLUTAMYLTRANSFERASE INCREASED [None]
